FAERS Safety Report 19474202 (Version 2)
Quarter: 2021Q3

REPORT INFORMATION
  Report Type: Spontaneous
  Country: FR (occurrence: FR)
  Receive Date: 20210630
  Receipt Date: 20210708
  Transmission Date: 20211014
  Serious: Yes (Death, Hospitalization, Other)
  Sender: FDA-Public Use
  Company Number: FR-ASTELLAS-2021US023698

PATIENT
  Age: 47 Year
  Sex: Male

DRUGS (3)
  1. XOSPATA [Suspect]
     Active Substance: GILTERITINIB
     Indication: ACUTE MYELOID LEUKAEMIA REFRACTORY
     Dosage: 3 DF, ONCE DAILY (ONE SINGLE INTAKE)
     Route: 048
     Dates: start: 20210504
  2. XOSPATA [Suspect]
     Active Substance: GILTERITINIB
     Dosage: 120 MG, ONCE DAILY (ONE SINGLE INTAKE)
     Route: 048
  3. XOSPATA [Suspect]
     Active Substance: GILTERITINIB
     Dosage: 1 DF, ONCE DAILY (DOSE DECREASED)
     Route: 048
     Dates: end: 2021

REACTIONS (4)
  - Hepatic enzyme increased [Unknown]
  - Acute myeloid leukaemia [Fatal]
  - Electrocardiogram QT prolonged [Recovered/Resolved]
  - Lipase increased [Unknown]

NARRATIVE: CASE EVENT DATE: 2021
